FAERS Safety Report 4575070-0 (Version None)
Quarter: 2005Q1

REPORT INFORMATION
  Report Type: 
  Country: None (occurrence: None)
  Receive Date: 20050208
  Receipt Date: 20041130
  Transmission Date: 20050727
  Serious: Yes (Hospitalization)
  Sender: FDA-Public Use
  Company Number: NO-GLAXOSMITHKLINE-B0359955A

PATIENT
  Age: 59 Year
  Sex: Male

DRUGS (8)
  1. AVANDIA [Suspect]
     Indication: DIABETES MELLITUS
     Dosage: 4MG PER DAY
     Route: 048
     Dates: start: 20041015
  2. LESCOL [Suspect]
     Dosage: 80MG PER DAY
     Route: 048
  3. PREDNISOLONE [Concomitant]
     Indication: POLYMYALGIA RHEUMATICA
     Dosage: 5MG PER DAY
     Route: 048
     Dates: start: 19980101
  4. INDERAL [Concomitant]
     Indication: VARICES OESOPHAGEAL
     Dosage: 40MG PER DAY
     Route: 048
  5. KALEORID [Concomitant]
     Dosage: 3U PER DAY
     Route: 048
  6. DIURAL [Concomitant]
     Dosage: 80MG PER DAY
     Route: 048
  7. AMARYL [Concomitant]
     Dosage: 3MG PER DAY
     Route: 048
  8. NEXIUM [Concomitant]
     Dosage: 40MG PER DAY
     Route: 048

REACTIONS (5)
  - ALANINE AMINOTRANSFERASE INCREASED [None]
  - ASPARTATE AMINOTRANSFERASE INCREASED [None]
  - ASTHENIA [None]
  - BLOOD CREATINE PHOSPHOKINASE INCREASED [None]
  - MYOSITIS [None]
